FAERS Safety Report 17290881 (Version 1)
Quarter: 2020Q1

REPORT INFORMATION
  Report Type: Spontaneous
  Country: ES (occurrence: ES)
  Receive Date: 20200121
  Receipt Date: 20200121
  Transmission Date: 20200409
  Serious: Yes (Other)
  Sender: FDA-Public Use
  Company Number: ES-BAYER-2019-153413

PATIENT
  Age: 37 Year
  Sex: Female

DRUGS (2)
  1. MIRENA [Suspect]
     Active Substance: LEVONORGESTREL
     Dosage: 20 MCG/24HR, CONT
     Route: 015
     Dates: start: 20180131
  2. MIRENA [Suspect]
     Active Substance: LEVONORGESTREL

REACTIONS (6)
  - Breast pain [None]
  - Pregnancy with contraceptive device [None]
  - Drug ineffective [None]
  - Genital haemorrhage [None]
  - Device dislocation [None]
  - Abdominal pain lower [None]

NARRATIVE: CASE EVENT DATE: 20190503
